FAERS Safety Report 14535268 (Version 3)
Quarter: 2018Q1

REPORT INFORMATION
  Report Type: Report from Study
  Country: BR (occurrence: BR)
  Receive Date: 20180215
  Receipt Date: 20180308
  Transmission Date: 20180509
  Serious: Yes (Hospitalization)
  Sender: FDA-Public Use
  Company Number: BR-SA-2018SA033907

PATIENT
  Sex: Female
  Weight: 51 kg

DRUGS (4)
  1. INDAPAMIDE. [Concomitant]
     Active Substance: INDAPAMIDE
     Dosage: 1.5 MG
     Route: 065
     Dates: start: 201702
  2. ALIROCUMAB [Suspect]
     Active Substance: ALIROCUMAB
     Indication: CORONARY ARTERY DISEASE
     Route: 058
     Dates: start: 20180123
  3. ALIROCUMAB PREFILLED PEN [Suspect]
     Active Substance: ALIROCUMAB
     Indication: CORONARY ARTERY DISEASE
     Dates: start: 20180123
  4. INDAPAMIDE. [Concomitant]
     Active Substance: INDAPAMIDE
     Route: 065

REACTIONS (3)
  - Hypertension [Recovered/Resolved]
  - Coronary artery disease [Recovered/Resolved]
  - Headache [Recovered/Resolved]

NARRATIVE: CASE EVENT DATE: 20180128
